APPROVED DRUG PRODUCT: ETHAMBUTOL HYDROCHLORIDE
Active Ingredient: ETHAMBUTOL HYDROCHLORIDE
Strength: 400MG
Dosage Form/Route: TABLET;ORAL
Application: A076057 | Product #001
Applicant: BARR LABORATORIES INC
Approved: Nov 26, 2001 | RLD: No | RS: No | Type: DISCN